FAERS Safety Report 18116094 (Version 1)
Quarter: 2020Q3

REPORT INFORMATION
  Report Type: Report from Study
  Country: US (occurrence: US)
  Receive Date: 20200805
  Receipt Date: 20200805
  Transmission Date: 20201103
  Serious: Yes (Hospitalization)
  Sender: FDA-Public Use
  Company Number: US-EXELIXIS-CABO-20031715

PATIENT
  Sex: Female

DRUGS (21)
  1. CEFPODOXIME [Concomitant]
     Active Substance: CEFPODOXIME
  2. HYDROCORTISONE. [Concomitant]
     Active Substance: HYDROCORTISONE
  3. METFORMIN [Concomitant]
     Active Substance: METFORMIN HYDROCHLORIDE
  4. TRAMADOL HCL [Concomitant]
     Active Substance: TRAMADOL HYDROCHLORIDE
  5. FLUTICASONE. [Concomitant]
     Active Substance: FLUTICASONE
  6. METRONIDAZOLE. [Concomitant]
     Active Substance: METRONIDAZOLE
  7. MIRTAZAPINE. [Concomitant]
     Active Substance: MIRTAZAPINE
  8. CABOMETYX [Suspect]
     Active Substance: CABOZANTINIB S-MALATE
     Indication: RENAL CANCER
     Dosage: 60 MG, QD
     Route: 048
     Dates: start: 20200209
  9. CALCITRIOL. [Concomitant]
     Active Substance: CALCITRIOL
  10. KETOCONAZOLE. [Concomitant]
     Active Substance: KETOCONAZOLE
  11. LEVETIRACETAM. [Concomitant]
     Active Substance: LEVETIRACETAM
  12. FLUCONAZOLE. [Concomitant]
     Active Substance: FLUCONAZOLE
  13. JANUVIA [Concomitant]
     Active Substance: SITAGLIPTIN PHOSPHATE
  14. LANTUS [Concomitant]
     Active Substance: INSULIN GLARGINE
  15. ONDANSETRON [Concomitant]
     Active Substance: ONDANSETRON
  16. SMZ?TMP DS [Concomitant]
     Active Substance: SULFAMETHOXAZOLE\TRIMETHOPRIM
  17. FAMOTIDINE. [Concomitant]
     Active Substance: FAMOTIDINE
  18. NYSTATIN. [Concomitant]
     Active Substance: NYSTATIN
  19. LEVOTHYROXINE SODIUM. [Concomitant]
     Active Substance: LEVOTHYROXINE SODIUM
  20. CABOMETYX [Suspect]
     Active Substance: CABOZANTINIB S-MALATE
     Dosage: 40 MG
     Route: 048
  21. CLONAZEPAM. [Concomitant]
     Active Substance: CLONAZEPAM

REACTIONS (1)
  - Illness [Unknown]
